FAERS Safety Report 19818462 (Version 1)
Quarter: 2021Q3

REPORT INFORMATION
  Report Type: Spontaneous
  Country: DE (occurrence: DE)
  Receive Date: 20210911
  Receipt Date: 20210911
  Transmission Date: 20211014
  Serious: Yes (Other)
  Sender: FDA-Public Use
  Company Number: NVSC2021DE201829

PATIENT
  Sex: Male

DRUGS (1)
  1. BEOVU [Suspect]
     Active Substance: BROLUCIZUMAB-DBLL
     Indication: AGE-RELATED MACULAR DEGENERATION
     Dosage: 0.05 ML
     Route: 031
     Dates: start: 202108

REACTIONS (4)
  - Vitreous haze [Not Recovered/Not Resolved]
  - Blindness [Not Recovered/Not Resolved]
  - Anterior chamber disorder [Not Recovered/Not Resolved]
  - Hypopyon [Not Recovered/Not Resolved]

NARRATIVE: CASE EVENT DATE: 202108
